FAERS Safety Report 8450851-1 (Version None)
Quarter: 2012Q2

REPORT INFORMATION
  Report Type: 
  Country: None (occurrence: None)
  Receive Date: 20120620
  Receipt Date: 20120618
  Transmission Date: 20120825
  Serious: Yes (Other)
  Sender: FDA-Public Use
  Company Number: PT-PFIZER INC-2012145931

PATIENT
  Age: 76 Year
  Sex: Female
  Weight: 61 kg

DRUGS (10)
  1. METFORMIN HCL [Concomitant]
     Route: 048
  2. NITRADISC [Suspect]
     Indication: ANGINA PECTORIS
     Dosage: 5MG/24H
     Route: 062
     Dates: start: 20120601
  3. RAMIPRIL [Concomitant]
     Route: 048
  4. LASIX [Concomitant]
     Route: 048
  5. CARTIA XT [Concomitant]
     Route: 048
  6. MAGNESIOCARD [Concomitant]
     Dosage: 1229.6 MG, 1X/DAY
     Route: 048
  7. PARACETAMOL GENERIS [Concomitant]
     Dosage: 500 MG, AS NEEDED
     Route: 048
  8. INSULATARD PENFILL [Concomitant]
     Route: 058
  9. NEBIVOLOL ACTAVIS [Concomitant]
  10. ATORVASTATINA FARMOZ [Concomitant]
     Route: 048

REACTIONS (2)
  - CHEST PAIN [None]
  - DYSPNOEA [None]
